FAERS Safety Report 13610589 (Version 9)
Quarter: 2018Q3

REPORT INFORMATION
  Report Type: Spontaneous
  Country: US (occurrence: US)
  Receive Date: 20170605
  Receipt Date: 20180717
  Transmission Date: 20181010
  Serious: Yes (Congenital Anomaly, Other)
  Sender: FDA-Public Use
  Company Number: PHEH2017US016602

PATIENT
  Sex: Male

DRUGS (2)
  1. ZOFRAN [Suspect]
     Active Substance: ONDANSETRON HYDROCHLORIDE
     Indication: FOETAL EXPOSURE DURING PREGNANCY
     Dosage: MOTHER^S DOSE: 8 MG, PRN
     Route: 064
  2. ONDANSETRON HYDROCHLORIDE. [Suspect]
     Active Substance: ONDANSETRON HYDROCHLORIDE
     Indication: FOETAL EXPOSURE DURING PREGNANCY
     Route: 064

REACTIONS (19)
  - Developmental delay [Unknown]
  - Cough [Unknown]
  - Diarrhoea [Unknown]
  - Prepuce redundant [Unknown]
  - Muscular weakness [Unknown]
  - Phimosis [Unknown]
  - Pyrexia [Unknown]
  - Hypospadias [Unknown]
  - Penile torsion [Unknown]
  - Viral infection [Unknown]
  - Sleep disorder [Unknown]
  - Seizure [Unknown]
  - Foetal exposure during pregnancy [Unknown]
  - Eczema [Unknown]
  - Autism spectrum disorder [Unknown]
  - Abdominal pain [Unknown]
  - Anxiety [Unknown]
  - Constipation [Unknown]
  - Speech disorder [Unknown]
